FAERS Safety Report 18575472 (Version 1)
Quarter: 2020Q4

REPORT INFORMATION
  Report Type: Spontaneous
  Country: BR (occurrence: BR)
  Receive Date: 20201203
  Receipt Date: 20201203
  Transmission Date: 20210114
  Serious: Yes (Other)
  Sender: FDA-Public Use
  Company Number: BR-GLAXOSMITHKLINE-BR2020AMR236297

PATIENT
  Age: 7 Year
  Sex: Male

DRUGS (5)
  1. SERETIDE [Suspect]
     Active Substance: FLUTICASONE PROPIONATE\SALMETEROL XINAFOATE
     Indication: ASTHMA
     Dosage: UNK, TID
     Dates: end: 20201104
  2. SYMBICORT [Suspect]
     Active Substance: BUDESONIDE\FORMOTEROL FUMARATE DIHYDRATE
     Indication: ASTHMA
     Dosage: UNK, TID
     Dates: start: 20201105
  3. SINGULAIR [Suspect]
     Active Substance: MONTELUKAST SODIUM
     Indication: PRODUCT USED FOR UNKNOWN INDICATION
     Dosage: 5 MG, QD (AT NIGHT)
  4. AZITROMICIN [Suspect]
     Active Substance: AZITHROMYCIN
     Indication: PRODUCT USED FOR UNKNOWN INDICATION
     Dosage: 250 MG, 3 X WEEK
     Dates: start: 201908
  5. SPIRIVA [Suspect]
     Active Substance: TIOTROPIUM BROMIDE MONOHYDRATE
     Indication: PRODUCT USED FOR UNKNOWN INDICATION
     Dosage: UNK
     Dates: start: 2018, end: 201910

REACTIONS (6)
  - Nasal septal operation [Unknown]
  - Polypectomy [Unknown]
  - Sleep disorder [Unknown]
  - Tonsillectomy [Unknown]
  - Apnoea [Unknown]
  - Crying [Unknown]

NARRATIVE: CASE EVENT DATE: 201903
